FAERS Safety Report 8179741-9 (Version None)
Quarter: 2012Q1

REPORT INFORMATION
  Report Type: 
  Country: None (occurrence: None)
  Receive Date: 20120302
  Receipt Date: 20120223
  Transmission Date: 20120608
  Serious: Yes (Other)
  Sender: FDA-Public Use
  Company Number: US-BAYER-2011-040575

PATIENT
  Age: 29 Year
  Sex: Female
  Weight: 73 kg

DRUGS (7)
  1. ESOMEPRAZOLE MAGNESIUM [Concomitant]
     Dosage: 20 MG, BID
  2. AMBIEN [Concomitant]
     Dosage: 10 MG, PRN
     Route: 048
  3. AMOXICILLIN [Concomitant]
     Dosage: 500 MG,  2 TABLETS TWICE DAILY
     Route: 048
  4. YAZ [Suspect]
     Indication: CONTRACEPTION
     Dosage: UNK
     Dates: start: 20070101, end: 20080101
  5. YASMIN [Suspect]
     Indication: CONTRACEPTION
     Dosage: UNK
     Dates: start: 20070101, end: 20080101
  6. YASMIN [Suspect]
     Dosage: UNK
     Dates: start: 20070101, end: 20080101
  7. CLARITHROMYCIN [Concomitant]
     Dosage: 500 MG, BID
     Route: 048

REACTIONS (8)
  - PAIN [None]
  - ABDOMINAL PAIN [None]
  - ANXIETY [None]
  - CHOLECYSTITIS CHRONIC [None]
  - EMOTIONAL DISTRESS [None]
  - CHOLELITHIASIS [None]
  - GENERAL PHYSICAL HEALTH DETERIORATION [None]
  - DISCOMFORT [None]
